FAERS Safety Report 9351368 (Version 1)
Quarter: 2013Q2

REPORT INFORMATION
  Report Type: Spontaneous
  Country: DE (occurrence: DE)
  Receive Date: 20130617
  Receipt Date: 20130617
  Transmission Date: 20140414
  Serious: Yes (Death)
  Sender: FDA-Public Use
  Company Number: DE-BAXTER-2013BAX017308

PATIENT
  Age: 40 Year
  Sex: Female
  Weight: 90 kg

DRUGS (2)
  1. SUPRANE [Suspect]
     Indication: ANAESTHESIA
     Dosage: 5 VOL%
     Route: 055
     Dates: start: 20130213, end: 20130213
  2. INSULIN [Concomitant]
     Indication: TYPE 2 DIABETES MELLITUS

REACTIONS (2)
  - Hyperthermia malignant [Fatal]
  - Cardiac arrest [Fatal]
